FAERS Safety Report 4872979-5 (Version None)
Quarter: 2006Q1

REPORT INFORMATION
  Report Type: 
  Country: None (occurrence: None)
  Receive Date: 20060105
  Receipt Date: 20050705
  Transmission Date: 20060701
  Serious: No
  Sender: FDA-Public Use
  Company Number: US-BRISTOL-MYERS SQUIBB COMPANY-13026406

PATIENT
  Age: 44 Year
  Sex: Female

DRUGS (7)
  1. SERZONE [Suspect]
     Indication: NERVOUSNESS
     Route: 048
     Dates: start: 19950101, end: 20000101
  2. ACETAMINOPHEN [Concomitant]
  3. IBUPROFEN [Concomitant]
  4. ESTRADIOL INJ [Concomitant]
  5. CARBAMAZEPINE [Concomitant]
  6. VICODIN [Concomitant]
  7. ULTRAM [Concomitant]

REACTIONS (1)
  - LIVER DISORDER [None]
